FAERS Safety Report 6221629-4 (Version None)
Quarter: 2009Q2

REPORT INFORMATION
  Report Type: 
  Country: None (occurrence: None)
  Receive Date: 20090610
  Receipt Date: 20090521
  Transmission Date: 20091009
  Serious: Yes (Other)
  Sender: FDA-Public Use
  Company Number: US-BAYER-200920306NA

PATIENT
  Age: 35 Year
  Sex: Female
  Weight: 47 kg

DRUGS (18)
  1. MAGNEVIST [Suspect]
     Indication: NUCLEAR MAGNETIC RESONANCE IMAGING ABDOMINAL
     Dates: start: 20020522, end: 20020522
  2. MAGNEVIST [Suspect]
     Dates: start: 20030603, end: 20030603
  3. MAGNEVIST [Suspect]
     Dates: start: 20041130, end: 20041130
  4. MAGNEVIST [Suspect]
     Dates: start: 20050324, end: 20050324
  5. MAGNEVIST [Suspect]
     Dates: start: 20050209, end: 20050209
  6. DILAUDID [Concomitant]
  7. OXYCODONE [Concomitant]
  8. OXYCONTIN [Concomitant]
  9. TRIAMCINOLONE [Concomitant]
  10. METOPROLOL SUCCINATE [Concomitant]
  11. RENAGEL [Concomitant]
  12. PREVACID [Concomitant]
  13. PLENDIL [Concomitant]
  14. CALCIJEX [Concomitant]
  15. EPOGEN [Concomitant]
  16. COUMADIN [Concomitant]
  17. CLONIDINE [Concomitant]
  18. LOPRESSOR [Concomitant]

REACTIONS (27)
  - ABASIA [None]
  - ARTHRALGIA [None]
  - BONE PAIN [None]
  - CALCINOSIS [None]
  - CONJUNCTIVAL HYPERAEMIA [None]
  - CORNEAL DEPOSITS [None]
  - EXTREMITY CONTRACTURE [None]
  - FIBROSIS [None]
  - GRIP STRENGTH DECREASED [None]
  - JOINT LOCK [None]
  - JOINT RANGE OF MOTION DECREASED [None]
  - MYALGIA [None]
  - NEPHROGENIC SYSTEMIC FIBROSIS [None]
  - OEDEMA [None]
  - OEDEMA PERIPHERAL [None]
  - PAIN [None]
  - PAIN IN EXTREMITY [None]
  - PAIN OF SKIN [None]
  - PEAU D'ORANGE [None]
  - SCLERAL DISORDER [None]
  - SCLERAL HYPERAEMIA [None]
  - SKIN DISCOLOURATION [None]
  - SKIN FIBROSIS [None]
  - SKIN HYPERPIGMENTATION [None]
  - SKIN INDURATION [None]
  - SKIN TIGHTNESS [None]
  - TENDON PAIN [None]
